FAERS Safety Report 6994267-3 (Version None)
Quarter: 2010Q3

REPORT INFORMATION
  Report Type: 
  Country: None (occurrence: None)
  Receive Date: 20100917
  Receipt Date: 20100527
  Transmission Date: 20110219
  Serious: Yes (Hospitalization)
  Sender: FDA-Public Use
  Company Number: US-ASTRAZENECA-2008UW22407

PATIENT
  Age: 21082 Day
  Sex: Male
  Weight: 106.6 kg

DRUGS (7)
  1. SEROQUEL [Suspect]
     Indication: SLEEP DISORDER
     Route: 048
     Dates: start: 20040513
  2. SEROQUEL [Suspect]
     Route: 048
     Dates: start: 20050820, end: 20070630
  3. THORAZINE [Concomitant]
     Dosage: 5 MG OR 10 MG
  4. LITHIUM CARBONATE [Concomitant]
     Dates: start: 19800101
  5. LITHIUM CARBONATE [Concomitant]
     Dates: start: 20040513
  6. WELLBUTRIN [Concomitant]
     Dosage: 2 150MG TABLETS A DAY
     Dates: start: 20070101
  7. TRAZODONE HCL [Concomitant]
     Dates: start: 20040524

REACTIONS (2)
  - BLOOD CHOLESTEROL INCREASED [None]
  - PANCREATITIS [None]
